FAERS Safety Report 10460855 (Version 1)
Quarter: 2014Q3

REPORT INFORMATION
  Report Type: Spontaneous
  Country: US (occurrence: None)
  Receive Date: 20140917
  Receipt Date: 20140917
  Transmission Date: 20150326
  Serious: Yes (Life-Threatening, Disabling, Other)
  Sender: FDA-Public Use
  Company Number: None

PATIENT
  Age: 24 Year
  Sex: Male
  Weight: 86.18 kg

DRUGS (1)
  1. CLINDAMYCIN [Suspect]
     Active Substance: CLINDAMYCIN\CLINDAMYCIN PHOSPHATE
     Indication: INFECTION PROPHYLAXIS
     Route: 048
     Dates: start: 20140616, end: 20140619

REACTIONS (5)
  - Fungal infection [None]
  - Ulcer [None]
  - Sinusitis [None]
  - Clostridium difficile infection [None]
  - Impaired work ability [None]

NARRATIVE: CASE EVENT DATE: 20140616
